FAERS Safety Report 18630703 (Version 1)
Quarter: 2020Q4

REPORT INFORMATION
  Report Type: Other
  Country: MY (occurrence: MY)
  Receive Date: 20201218
  Receipt Date: 20201218
  Transmission Date: 20210114
  Serious: Yes (Other)
  Sender: FDA-Public Use
  Company Number: MY-CELLTRION INC.-2020MY033742

PATIENT

DRUGS (1)
  1. REMSIMA [Suspect]
     Active Substance: INFLIXIMAB
     Indication: CROHN^S DISEASE
     Dosage: 300 MILLIGRAM (DOSE INTERVAL: 6 MONTHS)
     Route: 042

REACTIONS (8)
  - Suicidal ideation [Unknown]
  - Product substitution issue [Unknown]
  - Feeling hot [Unknown]
  - Vomiting [Unknown]
  - Dizziness [Unknown]
  - Off label use [Unknown]
  - Hallucination, auditory [Unknown]
  - Hallucination, visual [Unknown]
